FAERS Safety Report 18030942 (Version 2)
Quarter: 2021Q4

REPORT INFORMATION
  Report Type: Spontaneous
  Country: US (occurrence: US)
  Receive Date: 20200716
  Receipt Date: 20211209
  Transmission Date: 20220304
  Serious: Yes (Other)
  Sender: FDA-Public Use
  Company Number: US-GLAXOSMITHKLINE-US2020132792

PATIENT
  Sex: Male

DRUGS (9)
  1. ZANTAC [Suspect]
     Active Substance: RANITIDINE HYDROCHLORIDE
     Indication: Product used for unknown indication
     Dosage: UNK
     Route: 065
     Dates: start: 20140615, end: 20160615
  2. ZANTAC [Suspect]
     Active Substance: RANITIDINE HYDROCHLORIDE
     Indication: Dyspepsia
     Dosage: 75 MG, QD, PERIOD OF NON-USAGE 8/2010-9/2011
     Route: 065
     Dates: start: 200403, end: 2020
  3. ZANTAC [Suspect]
     Active Substance: RANITIDINE HYDROCHLORIDE
     Indication: Gastritis
     Dosage: 150 MG, QD, PERIOD OF NON-USAGE 8/2010-9/2011
     Route: 065
     Dates: start: 200403, end: 2020
  4. RANITIDINE [Suspect]
     Active Substance: RANITIDINE
     Indication: Dyspepsia
     Dosage: 75 MG, QD, PERIOD OF NON-USAGE 8/2010-9/2011
     Route: 065
     Dates: start: 200403, end: 2020
  5. RANITIDINE [Suspect]
     Active Substance: RANITIDINE
     Indication: Gastritis
     Dosage: 150 MG, QD, PERIOD OF NON-USAGE 8/2010-9/2011
     Route: 065
     Dates: start: 200403, end: 2020
  6. RANITIDINE [Suspect]
     Active Substance: RANITIDINE
     Indication: Dyspepsia
     Dosage: 300 MG, QD
     Route: 065
     Dates: start: 201601, end: 2020
  7. RANITIDINE [Suspect]
     Active Substance: RANITIDINE
     Indication: Gastritis
  8. RANITIDINE [Suspect]
     Active Substance: RANITIDINE
     Indication: Dyspepsia
     Dosage: 300 MG, QD
     Route: 065
     Dates: start: 201601, end: 2020
  9. RANITIDINE [Suspect]
     Active Substance: RANITIDINE
     Indication: Gastritis

REACTIONS (1)
  - Oesophageal carcinoma [Unknown]
